FAERS Safety Report 5325320-8 (Version None)
Quarter: 2007Q2

REPORT INFORMATION
  Report Type: 
  Country: None (occurrence: None)
  Receive Date: 20070515
  Receipt Date: 20070508
  Transmission Date: 20071010
  Serious: Yes (Other)
  Sender: FDA-Public Use
  Company Number: BR-ASTRAZENECA-2007UW08164

PATIENT
  Age: 24306 Day
  Sex: Male
  Weight: 83.5 kg

DRUGS (3)
  1. ZOLADEX [Suspect]
     Indication: PROSTATE CANCER
     Route: 058
     Dates: start: 20061101, end: 20070301
  2. ZOLADEX [Suspect]
     Route: 058
     Dates: start: 20070401
  3. RADIOTHERAPY [Concomitant]
     Indication: PROSTATE CANCER
     Dates: start: 20061101

REACTIONS (1)
  - PSORIASIS [None]
